FAERS Safety Report 4278318-5 (Version None)
Quarter: 2004Q1

REPORT INFORMATION
  Report Type: 
  Country: None (occurrence: None)
  Receive Date: 20040121
  Receipt Date: 20040105
  Transmission Date: 20041129
  Serious: Yes (Death, Hospitalization, Other)
  Sender: FDA-Public Use
  Company Number: USA040155767

PATIENT
  Age: 42 Year
  Sex: Female

DRUGS (4)
  1. ZYPREXA [Suspect]
  2. PROZAC [Suspect]
  3. HALDOL [Concomitant]
  4. PAXIL [Concomitant]

REACTIONS (1)
  - NEUROLEPTIC MALIGNANT SYNDROME [None]
